FAERS Safety Report 6353336-1 (Version None)
Quarter: 2009Q3

REPORT INFORMATION
  Report Type: 
  Country: None (occurrence: None)
  Receive Date: 20090912
  Receipt Date: 20081003
  Transmission Date: 20100115
  Serious: No
  Sender: FDA-Public Use
  Company Number: US-BAUSCH-2008BL004349

PATIENT

DRUGS (2)
  1. TROPICAMIDE [Suspect]
     Indication: DRUG USE FOR UNKNOWN INDICATION
  2. TROPICAMIDE [Suspect]
     Dates: start: 20080101

REACTIONS (1)
  - DRUG INEFFECTIVE [None]
